FAERS Safety Report 9725670 (Version 3)
Quarter: 2013Q4

REPORT INFORMATION
  Report Type: Spontaneous
  Country: US (occurrence: None)
  Receive Date: 20131127
  Receipt Date: 20131202
  Transmission Date: 20140711
  Serious: Yes (Hospitalization, Other)
  Sender: FDA-Public Use
  Company Number: SYM-2013-12997

PATIENT
  Age: 41 Year
  Sex: Male

DRUGS (23)
  1. TETRABENAZINE [Suspect]
     Indication: PRODUCT USED FOR UNKNOWN INDICATION
  2. AMANTADINE [Suspect]
     Indication: INSOMNIA
  3. AMANTADINE [Suspect]
     Indication: ORAL DISORDER
  4. BACLOFEN [Suspect]
     Indication: TARDIVE DYSKINESIA
  5. CLONAZEPAM [Suspect]
     Indication: CHOREA
  6. BENZTROPINE MESILATE [Suspect]
     Indication: DYSPNOEA
     Route: 030
  7. BENZTROPINE MESILATE [Suspect]
     Indication: DYSPHAGIA
     Route: 030
  8. BENZTROPINE MESILATE [Suspect]
     Route: 030
  9. BENZTROPINE MESILATE [Suspect]
     Indication: CHOREA
     Route: 030
  10. BENZTROPINE MESILATE [Suspect]
     Indication: DYSPNOEA
     Route: 030
  11. BENZTROPINE MESILATE [Suspect]
     Indication: CORNEAL REFLEX DECREASED
     Route: 030
  12. BENZTROPINE MESILATE [Suspect]
     Indication: SPEECH DISORDER
     Route: 030
  13. SERTRALINE [Suspect]
     Indication: ORAL DISORDER
  14. SERTRALINE [Suspect]
     Indication: INSOMNIA
  15. TRAZODONE [Suspect]
     Indication: ORAL DISORDER
  16. TRAZODONE [Suspect]
     Indication: INSOMNIA
  17. DIPHENHYDRAMINE [Suspect]
     Indication: ORAL DISORDER
  18. DIPHENHYDRAMINE [Suspect]
     Indication: INSOMNIA
  19. RISPERIDONE [Suspect]
     Indication: BRUXISM
  20. RISPERIDONE [Suspect]
     Indication: DYSKINESIA
  21. RISPERIDONE [Suspect]
     Indication: DYSPNOEA
  22. RESERPINE [Suspect]
     Indication: PRODUCT USED FOR UNKNOWN INDICATION
  23. BOTULINUM TOXIN [Suspect]
     Indication: PRODUCT USED FOR UNKNOWN INDICATION

REACTIONS (29)
  - Excessive eye blinking [None]
  - Dyspnoea [None]
  - Chorea [None]
  - Speech disorder [None]
  - Mastication disorder [None]
  - Dysphagia [None]
  - Dyspnoea [None]
  - Tongue biting [None]
  - Middle insomnia [None]
  - Sedation [None]
  - Disturbance in attention [None]
  - Vision blurred [None]
  - Dry mouth [None]
  - Constipation [None]
  - Urinary hesitation [None]
  - Oromandibular dystonia [None]
  - Blepharospasm [None]
  - Grunting [None]
  - Posture abnormal [None]
  - Anxiety [None]
  - Mouth injury [None]
  - Torticollis [None]
  - Neck pain [None]
  - Dystonia [None]
  - Dyskinesia [None]
  - Fall [None]
  - Extrapyramidal disorder [None]
  - Tardive dyskinesia [None]
  - Speech disorder [None]
